FAERS Safety Report 13535121 (Version 2)
Quarter: 2017Q2

REPORT INFORMATION
  Report Type: Spontaneous
  Country: US (occurrence: US)
  Receive Date: 20170511
  Receipt Date: 20170525
  Transmission Date: 20170830
  Serious: No
  Sender: FDA-Public Use
  Company Number: US-ASTRAZENECA-2017SE49632

PATIENT
  Age: 943 Month
  Sex: Male
  Weight: 88.5 kg

DRUGS (1)
  1. BYDUREON [Suspect]
     Active Substance: EXENATIDE
     Indication: BLOOD GLUCOSE INCREASED
     Dosage: 2 MG 4 COUNT, ONCE A WEEK
     Route: 030

REACTIONS (5)
  - Injection site mass [Not Recovered/Not Resolved]
  - Incorrect route of drug administration [Not Recovered/Not Resolved]
  - Blood glucose increased [Unknown]
  - Product quality issue [Unknown]
  - Erythema [Unknown]

NARRATIVE: CASE EVENT DATE: 201705
